FAERS Safety Report 14062159 (Version 2)
Quarter: 2018Q1

REPORT INFORMATION
  Report Type: Report from Study
  Country: BR (occurrence: BR)
  Receive Date: 20171009
  Receipt Date: 20180117
  Transmission Date: 20180508
  Serious: Yes (Hospitalization)
  Sender: FDA-Public Use
  Company Number: BR-TAKEDA-2017TUS011274

PATIENT
  Sex: Female

DRUGS (1)
  1. VEDOLIZUMAB [Suspect]
     Active Substance: VEDOLIZUMAB
     Indication: CROHN^S DISEASE
     Dosage: UNK
     Route: 065
     Dates: start: 20170621

REACTIONS (5)
  - Crohn^s disease [Unknown]
  - Diarrhoea [Unknown]
  - Gastrointestinal bacterial infection [Unknown]
  - Off label use [Unknown]
  - Drug ineffective [Unknown]
